FAERS Safety Report 10257868 (Version 1)
Quarter: 2014Q2

REPORT INFORMATION
  Report Type: Report from Study
  Country: CA (occurrence: CA)
  Receive Date: 20140625
  Receipt Date: 20140625
  Transmission Date: 20141212
  Serious: Yes (Hospitalization)
  Sender: FDA-Public Use
  Company Number: CA-BRISTOL-MYERS SQUIBB COMPANY-20872040

PATIENT
  Age: 59 Year
  Sex: Female

DRUGS (10)
  1. ABATACEPT SUBQ INJECTION 125MG/ML [Suspect]
     Indication: RHEUMATOID ARTHRITIS
     Route: 058
     Dates: start: 20140411
  2. VITAMIN D [Concomitant]
  3. FUROSEMIDE [Concomitant]
  4. WARFARIN [Concomitant]
  5. METOPROLOL [Concomitant]
  6. DIGOXIN [Concomitant]
  7. ACTONEL [Concomitant]
  8. CALCIUM [Concomitant]
  9. CALTRATE + D [Concomitant]
  10. FOLIC ACID [Concomitant]

REACTIONS (1)
  - Asthenia [Unknown]
